FAERS Safety Report 4588815-0 (Version None)
Quarter: 2005Q1

REPORT INFORMATION
  Report Type: 
  Country: None (occurrence: None)
  Receive Date: 20050216
  Receipt Date: 20050201
  Transmission Date: 20050727
  Serious: Yes (Hospitalization)
  Sender: FDA-Public Use
  Company Number: 201174

PATIENT
  Age: 52 Year
  Sex: Female

DRUGS (6)
  1. AVONEX [Suspect]
     Indication: MULTIPLE SCLEROSIS
     Dosage: SEE IMAGE, IM
     Route: 030
     Dates: start: 20040101, end: 20040101
  2. AVONEX [Suspect]
     Indication: MULTIPLE SCLEROSIS
     Dosage: SEE IMAGE, IM
     Route: 030
     Dates: start: 20040101
  3. PHENOBARBITAL TAB [Concomitant]
  4. DILANTIN [Concomitant]
  5. BACLOFEN [Concomitant]
  6. SYMMETREL [Concomitant]

REACTIONS (2)
  - RENAL CELL CARCINOMA STAGE III [None]
  - RENAL GRANULAR CELL CARCINOMA [None]
